FAERS Safety Report 19953019 (Version 3)
Quarter: 2021Q4

REPORT INFORMATION
  Report Type: Spontaneous
  Country: US (occurrence: US)
  Receive Date: 20211013
  Receipt Date: 20211112
  Transmission Date: 20220303
  Serious: Yes (Hospitalization, Other)
  Sender: FDA-Public Use
  Company Number: US-VIIV HEALTHCARE LIMITED-US2021GSK207990

PATIENT
  Age: 67 Year
  Sex: Female

DRUGS (7)
  1. DOLUTEGRAVIR [Suspect]
     Active Substance: DOLUTEGRAVIR
     Indication: HIV infection
     Dosage: 50 MG, QD
     Dates: start: 20201015, end: 202101
  2. BIKTARVY [Suspect]
     Active Substance: BICTEGRAVIR SODIUM\EMTRICITABINE\TENOFOVIR ALAFENAMIDE FUMARATE
     Indication: HIV infection
     Dosage: UNK
     Dates: start: 202103, end: 202103
  3. DORAVIRINE [Concomitant]
     Active Substance: DORAVIRINE
     Indication: HIV infection
     Dosage: UNK, QD
     Dates: start: 20201015, end: 202103
  4. COBICISTAT\DARUNAVIR ETHANOLATE [Concomitant]
     Active Substance: COBICISTAT\DARUNAVIR ETHANOLATE
     Indication: HIV infection
     Dosage: UNK, QD
     Dates: start: 20201015, end: 202101
  5. ATAZANAVIR [Concomitant]
     Active Substance: ATAZANAVIR
     Indication: HIV infection
     Dosage: UNK
     Dates: start: 2008, end: 202011
  6. ETRAVIRINE [Concomitant]
     Active Substance: ETRAVIRINE
     Indication: HIV infection
     Dosage: UNK
     Dates: start: 2008, end: 202011
  7. RALTEGRAVIR [Concomitant]
     Active Substance: RALTEGRAVIR
     Indication: HIV infection
     Dosage: UNK
     Dates: start: 2008, end: 202011

REACTIONS (7)
  - Drug-induced liver injury [Recovered/Resolved]
  - Fatigue [Recovered/Resolved]
  - Nausea [Recovered/Resolved]
  - Biliary tract disorder [Recovered/Resolved]
  - Cholestasis [Recovered/Resolved]
  - Anaemia [Recovered/Resolved]
  - Abdominal pain upper [Recovered/Resolved]
